FAERS Safety Report 8230918-3 (Version None)
Quarter: 2012Q1

REPORT INFORMATION
  Report Type: 
  Country: None (occurrence: None)
  Receive Date: 20120323
  Receipt Date: 20120319
  Transmission Date: 20120608
  Serious: Yes (Death)
  Sender: FDA-Public Use
  Company Number: US-CELGENEUS-163-21880-12032111

PATIENT
  Sex: Female
  Weight: 50.394 kg

DRUGS (8)
  1. BENAZEPRIL HYDROCHLORIDE [Concomitant]
     Dosage: 200 MILLIGRAM
     Route: 065
  2. REVLIMID [Suspect]
     Indication: MULTIPLE MYELOMA
     Dosage: 25 MILLIGRAM
     Route: 048
     Dates: start: 20120124, end: 20120313
  3. CALCIUM CARBONATE [Concomitant]
     Dosage: 600/400
     Route: 065
  4. IRON [Concomitant]
     Route: 050
  5. FERROUS FUMARATE [Concomitant]
     Dosage: 325 MILLIGRAM
     Route: 065
  6. SIMVASTATIN [Concomitant]
     Dosage: 40 MILLIGRAM
     Route: 065
  7. AMLODIPINE [Concomitant]
     Dosage: 5 MILLIGRAM
     Route: 065
  8. ASPIRIN [Concomitant]
     Dosage: 325 MILLIGRAM
     Route: 065

REACTIONS (2)
  - MALAISE [None]
  - DEATH [None]
